FAERS Safety Report 19132005 (Version 2)
Quarter: 2021Q3

REPORT INFORMATION
  Report Type: Spontaneous
  Country: IT (occurrence: IT)
  Receive Date: 20210413
  Receipt Date: 20210701
  Transmission Date: 20211014
  Serious: Yes (Life-Threatening, Other)
  Sender: FDA-Public Use
  Company Number: IT-PFIZER INC-2021380184

PATIENT
  Age: 74 Year
  Sex: Male

DRUGS (3)
  1. COMIRNATY [Suspect]
     Active Substance: TOZINAMERAN
     Indication: COVID-19 IMMUNISATION
     Dosage: DOSE 2, SINGLE
     Route: 030
     Dates: start: 20210326, end: 20210326
  2. TAZOCIN [Suspect]
     Active Substance: PIPERACILLIN SODIUM\TAZOBACTAM SODIUM
     Indication: PNEUMONIA
     Dosage: 13.5 G, DAILY
     Route: 042
     Dates: start: 20210316, end: 20210328
  3. TARGOSID [Suspect]
     Active Substance: TEICOPLANIN
     Indication: PNEUMONIA
     Dosage: 800 MG, DAILY
     Route: 042
     Dates: start: 20210317, end: 20210328

REACTIONS (6)
  - Acute respiratory failure [Recovering/Resolving]
  - Rash erythematous [Unknown]
  - Platelet count decreased [Unknown]
  - Hypotensive crisis [Recovering/Resolving]
  - Fibrin D dimer increased [Unknown]
  - Rash pruritic [Unknown]

NARRATIVE: CASE EVENT DATE: 20210328
